FAERS Safety Report 7577173-5 (Version None)
Quarter: 2011Q2

REPORT INFORMATION
  Report Type: 
  Country: None (occurrence: None)
  Receive Date: 20110628
  Receipt Date: 20110623
  Transmission Date: 20111010
  Serious: Yes (Death)
  Sender: FDA-Public Use
  Company Number: CA-CELGENEUS-028-21880-11063107

PATIENT
  Sex: Male

DRUGS (7)
  1. REVLIMID [Suspect]
     Indication: MULTIPLE MYELOMA
     Dosage: 25 MILLIGRAM
     Route: 048
     Dates: start: 20090314, end: 20110301
  2. PANTOPRAZOLE SODIUM [Concomitant]
     Route: 065
  3. TYLENOL-500 [Concomitant]
     Route: 065
  4. IBUPROFEN [Concomitant]
     Route: 065
  5. VIAGRA [Concomitant]
     Route: 065
  6. DECADRON [Concomitant]
     Route: 065
  7. PROCHLORPERAZINE TAB [Concomitant]
     Route: 065

REACTIONS (1)
  - DEATH [None]
